FAERS Safety Report 6177765-4 (Version None)
Quarter: 2009Q2

REPORT INFORMATION
  Report Type: 
  Country: None (occurrence: None)
  Receive Date: 20090501
  Receipt Date: 20090501
  Transmission Date: 20091009
  Serious: Yes (Hospitalization)
  Sender: FDA-Public Use
  Company Number: None

PATIENT
  Age: 30 Year
  Sex: Male

DRUGS (9)
  1. VANCOMYCIN HCL [Suspect]
     Indication: SEPSIS
     Dosage: 1750 MG IV Q12 HR
     Route: 042
  2. VANCOMYCIN HCL [Suspect]
     Indication: WOUND INFECTION
     Dosage: 1750 MG IV Q12 HR
     Route: 042
  3. HYDROMORPHONE HCL [Concomitant]
  4. MORPHINE [Concomitant]
  5. DOCUSATE [Concomitant]
  6. LOVENOX [Concomitant]
  7. OXYCODONE HCL [Concomitant]
  8. CYCLOBENZAPRINE [Concomitant]
  9. SENNA [Concomitant]

REACTIONS (2)
  - PANCYTOPENIA [None]
  - PYREXIA [None]
